FAERS Safety Report 8322249-8 (Version None)
Quarter: 2012Q2

REPORT INFORMATION
  Report Type: 
  Country: None (occurrence: None)
  Receive Date: 20120426
  Receipt Date: 20120326
  Transmission Date: 20120825
  Serious: Yes (Hospitalization)
  Sender: FDA-Public Use
  Company Number: CIP09000865

PATIENT
  Age: 56 Year
  Sex: Female

DRUGS (14)
  1. ACTONEL [Suspect]
     Indication: OSTEOPOROSIS
     Dosage: 150 MG ONCE MONTHLY, ORAL
     Route: 048
  2. TIZANIDINE HCL [Concomitant]
  3. SYNTHROID [Concomitant]
  4. VITAMIN B-12 [Concomitant]
  5. AMBIEN CR [Concomitant]
  6. DYAZIDE [Concomitant]
  7. TRILYTE (MACROGOL 3350, POTASSIUM CHLORIDE, SODIUM BICARBONATE, SODIUM [Concomitant]
  8. HYDROCODONE BITARTRATE [Concomitant]
  9. METOCLOPRAMIDE [Concomitant]
  10. EVISTA   /01303201/ (RALOXIFENE) [Concomitant]
  11. CALCIUM+D (CALCIUM, ERGOCALCIFEROL) [Concomitant]
  12. PREMARIN [Concomitant]
  13. FLEXERIL [Concomitant]
  14. TEMAZEPAM [Concomitant]

REACTIONS (18)
  - PYREXIA [None]
  - INTERVERTEBRAL DISC DEGENERATION [None]
  - NAUSEA [None]
  - OSTEOARTHRITIS [None]
  - GAIT DISTURBANCE [None]
  - DRUG INEFFECTIVE [None]
  - ARTHRALGIA [None]
  - CHILLS [None]
  - SPINAL COLUMN STENOSIS [None]
  - INTERVERTEBRAL DISC DISORDER [None]
  - PARAESTHESIA ORAL [None]
  - PAIN [None]
  - BACK PAIN [None]
  - INFLUENZA [None]
  - INTERVERTEBRAL DISC PROTRUSION [None]
  - BURSITIS [None]
  - CHEST PAIN [None]
  - VENTRICULAR EXTRASYSTOLES [None]
